FAERS Safety Report 13198097 (Version 1)
Quarter: 2017Q1

REPORT INFORMATION
  Report Type: Spontaneous
  Country: US (occurrence: US)
  Receive Date: 20170208
  Receipt Date: 20170208
  Transmission Date: 20170428
  Serious: Yes (Other)
  Sender: FDA-Public Use
  Company Number: US-DSJP-DSU-2017-103927

PATIENT

DRUGS (2)
  1. WELCHOL [Suspect]
     Active Substance: COLESEVELAM HYDROCHLORIDE
     Dosage: TWO 625 MG TABLETS AT NIGHT AND ONE 625 MG TABLET IN THE MORNING
     Route: 048
  2. WELCHOL [Suspect]
     Active Substance: COLESEVELAM HYDROCHLORIDE
     Indication: DIARRHOEA
     Dosage: 1250 MG, QD
     Route: 048
     Dates: start: 201612

REACTIONS (7)
  - Glaucoma [Recovered/Resolved]
  - Blood thyroid stimulating hormone increased [Unknown]
  - Fatigue [Unknown]
  - Blood pressure decreased [Unknown]
  - Hiccups [Unknown]
  - Off label use [Not Recovered/Not Resolved]
  - Blood glucose decreased [Unknown]

NARRATIVE: CASE EVENT DATE: 201612
